FAERS Safety Report 24467327 (Version 1)
Quarter: 2024Q4

REPORT INFORMATION
  Report Type: Spontaneous
  Country: ID (occurrence: ID)
  Receive Date: 20241018
  Receipt Date: 20241018
  Transmission Date: 20250115
  Serious: Yes (Death, Other)
  Sender: INCYTE
  Company Number: ID-002147023-NVSC2024ID202540

PATIENT

DRUGS (1)
  1. RUXOLITINIB [Suspect]
     Active Substance: RUXOLITINIB
     Indication: Myelofibrosis
     Dosage: 5 MG, BID
     Route: 065
     Dates: start: 202402

REACTIONS (2)
  - Pancytopenia [Unknown]
  - Death [Fatal]

NARRATIVE: CASE EVENT DATE: 20240601
